FAERS Safety Report 25705841 (Version 1)
Quarter: 2025Q3

REPORT INFORMATION
  Report Type: Spontaneous
  Country: US (occurrence: US)
  Receive Date: 20250820
  Receipt Date: 20250820
  Transmission Date: 20251021
  Serious: Yes (Other)
  Sender: AMGEN
  Company Number: US-AMGEN-USASP2025161449

PATIENT

DRUGS (4)
  1. ADALIMUMAB [Suspect]
     Active Substance: ADALIMUMAB
     Indication: Psoriasis
     Route: 065
  2. ETANERCEPT [Suspect]
     Active Substance: ETANERCEPT
     Indication: Psoriasis
     Route: 065
  3. INFLIXIMAB [Suspect]
     Active Substance: INFLIXIMAB
     Indication: Psoriasis
     Route: 065
  4. APREMILAST [Suspect]
     Active Substance: APREMILAST
     Indication: Psoriasis
     Route: 065

REACTIONS (10)
  - Malignant lymphoid neoplasm [Unknown]
  - Haematopoietic neoplasm [Unknown]
  - Neoplasm malignant [Unknown]
  - Carcinoma in situ [Unknown]
  - Soft tissue sarcoma [Unknown]
  - Malignant melanoma stage 0 [Unknown]
  - Malignant melanoma [Unknown]
  - Carcinoma in situ of skin [Unknown]
  - Skin cancer [Unknown]
  - Neuroendocrine carcinoma of the skin [Unknown]
